FAERS Safety Report 14921742 (Version 1)
Quarter: 2018Q2

REPORT INFORMATION
  Report Type: Other
  Country: DE (occurrence: DE)
  Receive Date: 20180522
  Receipt Date: 20180522
  Transmission Date: 20180711
  Serious: Yes (Congenital Anomaly, Other)
  Sender: FDA-Public Use
  Company Number: DE-MACLEODS PHARMACEUTICALS US LTD-MAC2018013496

PATIENT

DRUGS (3)
  1. SERTRALINE [Concomitant]
     Active Substance: SERTRALINE HYDROCHLORIDE
     Indication: DEPRESSION
     Dosage: 150 MILLIGRAM, QD, 2 {TRIMESTER}, 14. - 38.1. GESTATIONAL WEEK
     Route: 064
  2. ESCITALOPRAM [Suspect]
     Active Substance: ESCITALOPRAM OXALATE
     Indication: DEPRESSION
     Dosage: 10 MILLIGRAM, QD, 1 {TRIMESTER}, 7.5. - 11.6. GESTATIONAL WEEK
     Route: 064
  3. QUETIAPINE. [Concomitant]
     Active Substance: QUETIAPINE
     Indication: ANXIETY DISORDER
     Dosage: 25 MILLIGRAM, QD, 2 {TRIMESTER}, 14. - 38.1. GESTATIONAL WEEK
     Route: 064

REACTIONS (2)
  - Atrial septal defect [Recovered/Resolved]
  - Pulmonary artery stenosis congenital [Not Recovered/Not Resolved]

NARRATIVE: CASE EVENT DATE: 20171105
